FAERS Safety Report 15051223 (Version 1)
Quarter: 2018Q2

REPORT INFORMATION
  Report Type: Spontaneous
  Country: US (occurrence: US)
  Receive Date: 20180601
  Receipt Date: 20180601
  Transmission Date: 20180711
  Serious: Yes (Disabling)
  Sender: FDA-Public Use
  Company Number: None

PATIENT
  Age: 76 Year
  Sex: Female
  Weight: 54.43 kg

DRUGS (11)
  1. COOL LIVE OIL LIQUID [Concomitant]
  2. 81MG BABY ASPIRIN [Concomitant]
  3. LEVOTHYROXINE. [Concomitant]
     Active Substance: LEVOTHYROXINE
  4. VITAMIN C [Concomitant]
     Active Substance: ASCORBIC ACID
  5. HOMEOPATHIC TREATMENT [Concomitant]
  6. LIQUID ACIDOPHOLUS [Concomitant]
  7. FISH OIL [Concomitant]
     Active Substance: FISH OIL
  8. ACIDOPHOLUS CULTURE [Concomitant]
  9. XALATAN [Suspect]
     Active Substance: LATANOPROST
     Indication: GLAUCOMA
     Dosage: QUANTITY:1 DF DOSAGE FORM; NIGHTLY?
     Route: 047
     Dates: start: 20171010, end: 201804
  10. CALCIUM CITRATE + VITAMIN D3 [Concomitant]
  11. BOIRON BLUE TUBES [Concomitant]

REACTIONS (2)
  - Muscle spasms [None]
  - Therapeutic response decreased [None]

NARRATIVE: CASE EVENT DATE: 20171010
